FAERS Safety Report 20232288 (Version 1)
Quarter: 2021Q4

REPORT INFORMATION
  Report Type: Spontaneous
  Country: US (occurrence: None)
  Receive Date: 20211224
  Receipt Date: 20211224
  Transmission Date: 20220303
  Serious: Yes (Hospitalization)
  Sender: FDA-Public Use
  Company Number: None

PATIENT
  Age: 24 Year
  Sex: Male
  Weight: 69.75 kg

DRUGS (1)
  1. FINASTERIDE [Suspect]
     Active Substance: FINASTERIDE
     Indication: Alopecia
     Route: 048
     Dates: start: 20211113, end: 20211115

REACTIONS (4)
  - Testicular pain [None]
  - Testicular atrophy [None]
  - Testicular disorder [None]
  - Semen viscosity abnormal [None]

NARRATIVE: CASE EVENT DATE: 20211113
